FAERS Safety Report 24903748 (Version 1)
Quarter: 2025Q1

REPORT INFORMATION
  Report Type: Spontaneous
  Country: US (occurrence: US)
  Receive Date: 20250130
  Receipt Date: 20250130
  Transmission Date: 20250408
  Serious: Yes (Other)
  Sender: COOPERSURGICAL
  Company Number: US-COOPERSURGICAL, INC.-2025CPS000407

PATIENT
  Age: 53 Year
  Sex: Female
  Weight: 59.41 kg

DRUGS (3)
  1. PARAGARD T 380A [Suspect]
     Active Substance: COPPER
     Route: 015
     Dates: start: 20140115
  2. CELECOXIB [Concomitant]
     Active Substance: CELECOXIB
     Dates: start: 2005
  3. KLONOPIN [Concomitant]
     Active Substance: CLONAZEPAM
     Dates: start: 2014

REACTIONS (24)
  - Hysterectomy [Recovered/Resolved]
  - Salpingectomy [Recovered/Resolved]
  - Lymphadenectomy [Recovered/Resolved]
  - Endometrial dysplasia [Unknown]
  - Device breakage [Recovered/Resolved]
  - Foreign body in reproductive tract [Recovered/Resolved]
  - Complication of device removal [Recovered/Resolved]
  - Embedded device [Recovered/Resolved]
  - Procedural pain [Recovered/Resolved]
  - Emotional distress [Recovered/Resolved]
  - Arthralgia [Recovered/Resolved]
  - Dyschezia [Recovered/Resolved]
  - Fatigue [Recovered/Resolved]
  - Insomnia [Recovered/Resolved]
  - Atrophic vulvovaginitis [Not Recovered/Not Resolved]
  - Menopause [Not Recovered/Not Resolved]
  - Emotional disorder [Unknown]
  - Pain [Recovered/Resolved]
  - Abnormal uterine bleeding [Recovered/Resolved]
  - Muscle spasms [Recovered/Resolved]
  - Abdominal pain [Recovered/Resolved]
  - Dyspareunia [Not Recovered/Not Resolved]
  - Pelvic discomfort [Not Recovered/Not Resolved]
  - Menstruation irregular [Recovered/Resolved]

NARRATIVE: CASE EVENT DATE: 20230619
